FAERS Safety Report 14938322 (Version 3)
Quarter: 2018Q3

REPORT INFORMATION
  Report Type: Spontaneous
  Country: BR (occurrence: BR)
  Receive Date: 20180525
  Receipt Date: 20180730
  Transmission Date: 20181010
  Serious: Yes (Other)
  Sender: FDA-Public Use
  Company Number: BR-009507513-1805BRA007705

PATIENT
  Age: 62 Year
  Sex: Female
  Weight: 82 kg

DRUGS (5)
  1. JANUMET [Suspect]
     Active Substance: METFORMIN HYDROCHLORIDE\SITAGLIPTIN PHOSPHATE
     Indication: TYPE 2 DIABETES MELLITUS
     Dosage: 1 TABLET AT LUNCH, 1 TABLET IN THE AFTERNOON AND SOMETIMES 1 TABLET AT NIGHT
     Route: 048
     Dates: start: 2018
  2. JANUMET [Suspect]
     Active Substance: METFORMIN HYDROCHLORIDE\SITAGLIPTIN PHOSPHATE
     Dosage: UNK
     Route: 048
  3. ALOGLIPTIN BENZOATE, METFORMIN HYDROCHLORIDE [Suspect]
     Active Substance: ALOGLIPTIN BENZOATE\METFORMIN HYDROCHLORIDE
     Indication: TYPE 2 DIABETES MELLITUS
     Dosage: UNK
     Dates: start: 201802, end: 2018
  4. JANUMET [Suspect]
     Active Substance: METFORMIN HYDROCHLORIDE\SITAGLIPTIN PHOSPHATE
     Dosage: 1 TABLET AT LUNCH, 1 TABLET IN THE AFTERNOON AND SOMETIMES 1 TABLET AT NIGHT
     Route: 048
     Dates: start: 2015, end: 201802
  5. INSULIN [Concomitant]
     Active Substance: INSULIN NOS
     Indication: TYPE 2 DIABETES MELLITUS

REACTIONS (14)
  - Blood glucose increased [Recovered/Resolved]
  - Blood glucose decreased [Recovered/Resolved]
  - Blood glucose abnormal [Recovered/Resolved]
  - Feeling abnormal [Not Recovered/Not Resolved]
  - Feeding disorder [Recovered/Resolved]
  - Abdominal pain upper [Recovered/Resolved]
  - Vision blurred [Recovered/Resolved]
  - Drug ineffective [Unknown]
  - Hyperhidrosis [Recovered/Resolved]
  - Tremor [Recovered/Resolved]
  - Diabetes mellitus inadequate control [Not Recovered/Not Resolved]
  - Drug effect delayed [Unknown]
  - Malaise [Recovered/Resolved]
  - Extra dose administered [Unknown]

NARRATIVE: CASE EVENT DATE: 2015
